FAERS Safety Report 4905667-7 (Version None)
Quarter: 2006Q1

REPORT INFORMATION
  Report Type: 
  Country: None (occurrence: None)
  Receive Date: 20060113
  Receipt Date: 20050929
  Transmission Date: 20060701
  Serious: No
  Sender: FDA-Public Use
  Company Number: 2005SP002739

PATIENT
  Age: 67 Year
  Sex: Male
  Weight: 96.1626 kg

DRUGS (8)
  1. LUNESTA [Suspect]
     Indication: INSOMNIA
     Dosage: 2 MG;HS;ORAL, 3 MG;HS;ORAL
     Route: 048
     Dates: start: 20050906, end: 20050907
  2. LUNESTA [Suspect]
     Indication: INSOMNIA
     Dosage: 2 MG;HS;ORAL, 3 MG;HS;ORAL
     Route: 048
     Dates: start: 20050908, end: 20050908
  3. AMBIEN [Concomitant]
  4. ATORVASTATIN CALCIUM [Concomitant]
  5. ATENOLOL [Concomitant]
  6. ALTACE [Concomitant]
  7. NORTRIPTYLINE HCL [Concomitant]
  8. ASPIRIN [Concomitant]

REACTIONS (2)
  - DRUG INEFFECTIVE [None]
  - INSOMNIA [None]
